FAERS Safety Report 9370207 (Version 3)
Quarter: 2013Q4

REPORT INFORMATION
  Report Type: Spontaneous
  Country: US (occurrence: None)
  Receive Date: 20130624
  Receipt Date: 20131212
  Transmission Date: 20140711
  Serious: Yes (Life-Threatening, Hospitalization)
  Sender: FDA-Public Use
  Company Number: 20130311

PATIENT
  Age: 41 Year
  Sex: Female

DRUGS (3)
  1. VENOFER [Suspect]
     Route: 042
     Dates: start: 20130607, end: 20130607
  2. VENOFER [Suspect]
     Indication: PRODUCT USED FOR UNKNOWN INDICATION
     Route: 042
     Dates: start: 20130607, end: 20130607
  3. VENOFER [Suspect]
     Indication: PRODUCT USED FOR UNKNOWN INDICATION
     Route: 042
     Dates: start: 20130607, end: 20130607

REACTIONS (10)
  - Hypotension [None]
  - Blood potassium decreased [None]
  - Rash [None]
  - Dyspnoea [None]
  - Chest pain [None]
  - Pallor [None]
  - Acidosis [None]
  - Malaise [None]
  - Anaphylactic reaction [None]
  - White blood cell count increased [None]
